FAERS Safety Report 6233883-3 (Version None)
Quarter: 2009Q2

REPORT INFORMATION
  Report Type: 
  Country: None (occurrence: None)
  Receive Date: 20090618
  Receipt Date: 20090616
  Transmission Date: 20091009
  Serious: Yes (Hospitalization)
  Sender: FDA-Public Use
  Company Number: IT-BRISTOL-MYERS SQUIBB COMPANY-14665848

PATIENT
  Age: 71 Year
  Sex: Male

DRUGS (8)
  1. COUMADIN [Suspect]
     Indication: ATRIAL FIBRILLATION
     Dosage: INTERRUPTED ON 25MAY2009
     Route: 048
     Dates: start: 20040101
  2. CLARITHROMYCIN [Suspect]
     Indication: BRONCHOPNEUMONIA
     Route: 048
     Dates: start: 20090521, end: 20090525
  3. NITROGLYCERIN [Concomitant]
     Route: 062
  4. CONGESCOR [Concomitant]
  5. SPIRIVA [Concomitant]
  6. CORDARONE [Concomitant]
  7. TOTALIP [Concomitant]
  8. GLUCOPHAGE [Concomitant]

REACTIONS (3)
  - EPISTAXIS [None]
  - HEPATIC FAILURE [None]
  - RENAL FAILURE ACUTE [None]
